FAERS Safety Report 14419471 (Version 1)
Quarter: 2018Q1

REPORT INFORMATION
  Report Type: Other
  Country: HR (occurrence: HR)
  Receive Date: 20180122
  Receipt Date: 20180122
  Transmission Date: 20180509
  Serious: Yes (Other)
  Sender: FDA-Public Use
  Company Number: HR-VALIDUS PHARMACEUTICALS LLC-HR-2018VAL000133

PATIENT
  Age: 41 Year
  Sex: Female

DRUGS (2)
  1. ROCALTROL [Suspect]
     Active Substance: CALCITRIOL
     Indication: PRIMARY HYPOPARATHYROIDISM
     Dosage: 1 ?G, QD
     Route: 048
     Dates: start: 20171026
  2. ROCALTROL [Suspect]
     Active Substance: CALCITRIOL
     Dosage: 0.75 ?G, QD
     Route: 048
     Dates: start: 2017

REACTIONS (5)
  - Insomnia [Unknown]
  - Dyspnoea [Recovered/Resolved]
  - Chest discomfort [Unknown]
  - Paraesthesia [Unknown]
  - Diarrhoea [Unknown]

NARRATIVE: CASE EVENT DATE: 20171030
